FAERS Safety Report 10862395 (Version 1)
Quarter: 2015Q1

REPORT INFORMATION
  Report Type: Report from Study
  Country: CA (occurrence: CA)
  Receive Date: 20150224
  Receipt Date: 20150224
  Transmission Date: 20150721
  Serious: Yes (Hospitalization, Other)
  Sender: FDA-Public Use
  Company Number: CA-AMGEN-CANSL2015015895

PATIENT
  Age: 63 Year
  Sex: Female

DRUGS (1)
  1. ARANESP [Suspect]
     Active Substance: DARBEPOETIN ALFA
     Indication: PRODUCT USED FOR UNKNOWN INDICATION
     Dosage: 500 MUG, UNK
     Route: 065
     Dates: start: 20150131

REACTIONS (8)
  - Blood count abnormal [Recovering/Resolving]
  - Haemoptysis [Recovering/Resolving]
  - Asthenia [Recovering/Resolving]
  - Oropharyngeal pain [Recovering/Resolving]
  - Immune system disorder [Recovering/Resolving]
  - Pyrexia [Recovering/Resolving]
  - Gingival bleeding [Recovering/Resolving]
  - Malaise [Recovering/Resolving]
